FAERS Safety Report 7311187-5 (Version None)
Quarter: 2011Q1

REPORT INFORMATION
  Report Type: 
  Country: None (occurrence: None)
  Receive Date: 20110210
  Receipt Date: 20110120
  Transmission Date: 20110831
  Serious: Yes (Death)
  Sender: FDA-Public Use
  Company Number: AE11-016-4

PATIENT
  Age: 29 Year
  Sex: Male

DRUGS (7)
  1. PRIMIDONE [Suspect]
  2. FENTANYL-100 [Suspect]
  3. VENLAFAXINE [Suspect]
  4. LORCET (HYDROCODONE/ACETAMINOPHEN) [Suspect]
  5. LEVETIRACETAM [Suspect]
  6. TIZANIDINE [Suspect]
  7. CLONAZEPAM [Suspect]

REACTIONS (3)
  - COMPLETED SUICIDE [None]
  - MULTIPLE DRUG OVERDOSE INTENTIONAL [None]
  - CARDIO-RESPIRATORY ARREST [None]
